FAERS Safety Report 5740604-7 (Version None)
Quarter: 2008Q2

REPORT INFORMATION
  Report Type: 
  Country: None (occurrence: None)
  Receive Date: 20080516
  Receipt Date: 20080514
  Transmission Date: 20081010
  Serious: Yes (Other)
  Sender: FDA-Public Use
  Company Number: A0727902A

PATIENT
  Age: 63 Year
  Sex: Female

DRUGS (2)
  1. VERAMYST [Suspect]
     Route: 045
     Dates: start: 20070801, end: 20080507
  2. UNKNOWN [Concomitant]

REACTIONS (1)
  - NASAL SEPTUM PERFORATION [None]
